FAERS Safety Report 5358083-0 (Version None)
Quarter: 2007Q2

REPORT INFORMATION
  Report Type: 
  Country: None (occurrence: None)
  Receive Date: 20070530
  Receipt Date: 20070212
  Transmission Date: 20071010
  Serious: Yes (Other)
  Sender: FDA-Public Use
  Company Number: US200702002164

PATIENT
  Age: 51 Year
  Sex: Female

DRUGS (2)
  1. ZYPREXA ZYDIS [Suspect]
     Indication: SCHIZOPHRENIA
     Dosage: ORAL
     Route: 048
     Dates: start: 20060601
  2. LORTAB [Concomitant]

REACTIONS (4)
  - BLOOD GLUCOSE DECREASED [None]
  - DYSPNOEA [None]
  - POLYDIPSIA [None]
  - WEIGHT INCREASED [None]
